FAERS Safety Report 7203896-3 (Version None)
Quarter: 2010Q4

REPORT INFORMATION
  Report Type: 
  Country: None (occurrence: None)
  Receive Date: 20101230
  Receipt Date: 20101221
  Transmission Date: 20110411
  Serious: Yes (Hospitalization)
  Sender: FDA-Public Use
  Company Number: FR-JNJFOC-20101208120

PATIENT
  Sex: Female

DRUGS (7)
  1. RISPERDAL [Suspect]
     Indication: PRODUCT USED FOR UNKNOWN INDICATION
     Route: 048
  2. SERESTA [Suspect]
     Indication: PRODUCT USED FOR UNKNOWN INDICATION
     Route: 048
  3. LASIX [Suspect]
     Indication: PRODUCT USED FOR UNKNOWN INDICATION
     Route: 048
  4. APROVEL [Suspect]
     Indication: PRODUCT USED FOR UNKNOWN INDICATION
     Route: 048
  5. RIVOTRIL [Suspect]
     Indication: PRODUCT USED FOR UNKNOWN INDICATION
     Route: 048
  6. HEMIGOXINE NATIVELLE [Concomitant]
     Route: 048
  7. KARDEGIC [Concomitant]
     Route: 048

REACTIONS (11)
  - AGITATION [None]
  - BLOOD CREATININE INCREASED [None]
  - BLOOD PRESSURE DECREASED [None]
  - BRAIN NATRIURETIC PEPTIDE DECREASED [None]
  - C-REACTIVE PROTEIN INCREASED [None]
  - FALL [None]
  - HYPONATRAEMIA [None]
  - INTENTIONAL DRUG MISUSE [None]
  - JOINT DISLOCATION [None]
  - NORMOCHROMIC NORMOCYTIC ANAEMIA [None]
  - TREATMENT NONCOMPLIANCE [None]
